FAERS Safety Report 19196859 (Version 1)
Quarter: 2021Q2

REPORT INFORMATION
  Report Type: Spontaneous
  Country: IT (occurrence: IT)
  Receive Date: 20210429
  Receipt Date: 20210429
  Transmission Date: 20210717
  Serious: Yes (Other)
  Sender: FDA-Public Use
  Company Number: IT-AMGEN-ITASP2021062806

PATIENT

DRUGS (1)
  1. ADALIMUMAB [Suspect]
     Active Substance: ADALIMUMAB
     Indication: HIDRADENITIS
     Dosage: 40 MILLIGRAM, QWK
     Route: 058

REACTIONS (15)
  - Refractory cytopenia with unilineage dysplasia [Unknown]
  - Arthritis [Unknown]
  - Anaemia [Unknown]
  - Drug ineffective [Unknown]
  - Optic neuritis [Unknown]
  - Pyrexia [Unknown]
  - Cystitis [Unknown]
  - Nausea [Unknown]
  - Chronic kidney disease [Unknown]
  - Myalgia [Unknown]
  - Local reaction [Unknown]
  - Myositis [Unknown]
  - Squamous cell carcinoma of skin [Unknown]
  - Asthenia [Unknown]
  - Asymptomatic COVID-19 [Recovered/Resolved]
